FAERS Safety Report 8522451-6 (Version None)
Quarter: 2012Q3

REPORT INFORMATION
  Report Type: 
  Country: None (occurrence: None)
  Receive Date: 20120719
  Receipt Date: 20120717
  Transmission Date: 20120928
  Serious: Yes (Other)
  Sender: FDA-Public Use
  Company Number: US-TEVA-349025USA

PATIENT
  Sex: Female
  Weight: 61.29 kg

DRUGS (1)
  1. COPAXONE [Suspect]
     Indication: MULTIPLE SCLEROSIS
     Dosage: 20 MILLIGRAM;
     Route: 058
     Dates: start: 20120113, end: 20120714

REACTIONS (2)
  - CHEST DISCOMFORT [None]
  - URTICARIA [None]
